FAERS Safety Report 7623852-0 (Version None)
Quarter: 2011Q3

REPORT INFORMATION
  Report Type: 
  Country: None (occurrence: None)
  Receive Date: 20110720
  Receipt Date: 20110718
  Transmission Date: 20111222
  Serious: Yes (Other)
  Sender: FDA-Public Use
  Company Number: US-PFIZER INC-2011162876

PATIENT
  Sex: Female

DRUGS (1)
  1. LYRICA [Suspect]
     Indication: NEURALGIA
     Dosage: 25 MG, 2X/DAY
     Dates: start: 20100701

REACTIONS (5)
  - VOMITING [None]
  - PAIN [None]
  - TYPE 2 DIABETES MELLITUS [None]
  - NAUSEA [None]
  - MALAISE [None]
